FAERS Safety Report 17663978 (Version 1)
Quarter: 2020Q2

REPORT INFORMATION
  Report Type: Spontaneous
  Country: FR (occurrence: FR)
  Receive Date: 20200414
  Receipt Date: 20200414
  Transmission Date: 20200713
  Serious: Yes (Life-Threatening)
  Sender: FDA-Public Use
  Company Number: FR-ORION CORPORATION ORION PHARMA-20_00008866

PATIENT
  Age: 75 Year
  Sex: Male
  Weight: 89 kg

DRUGS (2)
  1. CORTANCYL [Suspect]
     Active Substance: PREDNISONE
     Indication: TEMPORAL ARTERITIS
     Route: 048
  2. METHOTREXATE (TRADE NAME UNKNOWN) [Suspect]
     Active Substance: METHOTREXATE
     Indication: TEMPORAL ARTERITIS
     Route: 048

REACTIONS (3)
  - Acute respiratory failure [Recovering/Resolving]
  - Product use in unapproved indication [Unknown]
  - Condition aggravated [Recovering/Resolving]

NARRATIVE: CASE EVENT DATE: 20200322
